FAERS Safety Report 8908085 (Version 5)
Quarter: 2012Q4

REPORT INFORMATION
  Report Type: 
  Country: NL (occurrence: US)
  Receive Date: 20121113
  Receipt Date: 20121206
  Transmission Date: 20130627
  Serious: No
  Sender: FDA-Public Use
  Company Number: US-009507513-2012SP022622

PATIENT
  Sex: Female
  Weight: 90.72 kg

DRUGS (1)
  1. IMPLANON [Suspect]
     Indication: CONTRACEPTION
     Dosage: 1 DF, 1 insertion for 3 years
     Route: 058
     Dates: start: 20100113

REACTIONS (2)
  - Unintended pregnancy [Recovered/Resolved]
  - Medical device complication [Unknown]
